FAERS Safety Report 4769892-0 (Version None)
Quarter: 2005Q3

REPORT INFORMATION
  Report Type: 
  Country: None (occurrence: None)
  Receive Date: 20050915
  Receipt Date: 20050613
  Transmission Date: 20060218
  Serious: Yes (Death, Life-Threatening)
  Sender: FDA-Public Use
  Company Number: DEWYE736013JUN05

PATIENT
  Sex: Male

DRUGS (18)
  1. ENBREL [Suspect]
     Indication: PYODERMA GANGRENOSUM
     Dosage: UNKNOWN
     Route: 058
     Dates: start: 20050427, end: 20050522
  2. PREDNISOLONE [Suspect]
     Indication: PYODERMA GANGRENOSUM
     Dosage: UNKNOWN
     Route: 048
     Dates: start: 20040801
  3. CYCLOSPORINE [Concomitant]
     Dates: start: 20050131, end: 20050522
  4. AMPHOTERICIN B [Concomitant]
  5. LACTULOSE [Concomitant]
  6. TRAMADOL HYDROCHLORIDE [Concomitant]
     Dates: start: 20050127
  7. AMITRIPTYLINE HCL [Concomitant]
     Dates: start: 20040101
  8. CALCIUM GLUCONATE [Concomitant]
  9. VIGANTOLETTEN [Concomitant]
  10. NEXIUM [Concomitant]
     Dates: start: 20040101
  11. METOPROLOL SUCCINATE [Concomitant]
     Dates: start: 20040101
  12. FUROSEMIDE [Concomitant]
     Dates: start: 20050302
  13. DIGITOXIN TAB [Concomitant]
     Dates: start: 20040101
  14. RAMIPRIL [Concomitant]
     Dates: start: 20040101
  15. POTASSIUM CHLORIDE [Concomitant]
     Dates: start: 20050315
  16. IBUPROFEN [Concomitant]
     Dates: start: 20050508
  17. TORSEMIDE [Concomitant]
     Dates: start: 20050522
  18. MARCUMAR [Concomitant]
     Dates: start: 20040101

REACTIONS (3)
  - DIVERTICULITIS [None]
  - LARGE INTESTINE PERFORATION [None]
  - PERITONITIS [None]
